FAERS Safety Report 4524907-X (Version None)
Quarter: 2004Q4

REPORT INFORMATION
  Report Type: 
  Country: None (occurrence: None)
  Receive Date: 20041210
  Receipt Date: 20041014
  Transmission Date: 20050328
  Serious: Yes (Hospitalization, Other)
  Sender: FDA-Public Use
  Company Number: M2004-1815

PATIENT
  Age: 84 Year
  Sex: Male

DRUGS (7)
  1. DICLOFENAC [Suspect]
     Indication: PAIN
     Dosage: 50MG TDS, ORAL
     Route: 048
     Dates: end: 20041129
  2. CITALOPRAM [Suspect]
     Indication: DEPRESSION
     Dosage: 20 MG, ORAL
     Route: 048
  3. PEPPERMINT OIL MENTHA [Concomitant]
  4. ATENOLOL AND CHLORTHALIDONE [Concomitant]
  5. DIGOXIN [Concomitant]
  6. PARACETAMOL-CODEINE [Concomitant]
  7. NIFEDIPINE [Concomitant]

REACTIONS (3)
  - DUODENAL ULCER HAEMORRHAGE [None]
  - GASTRIC ULCER [None]
  - GASTROINTESTINAL HAEMORRHAGE [None]
